FAERS Safety Report 9551409 (Version 1)
Quarter: 2013Q3

REPORT INFORMATION
  Report Type: Spontaneous
  Country: US (occurrence: US)
  Receive Date: 20130925
  Receipt Date: 20130925
  Transmission Date: 20140515
  Serious: No
  Sender: FDA-Public Use
  Company Number: US-009507513-1309USA008688

PATIENT
  Age: 25 Year
  Sex: Male

DRUGS (4)
  1. SAPHRIS [Suspect]
     Indication: SCHIZOAFFECTIVE DISORDER
     Dosage: 5 MG, BID
     Route: 060
  2. RISPERIDONE [Concomitant]
     Dosage: 5.5 MG, UNK
  3. ARIPIPRAZOLE [Concomitant]
     Dosage: 15 MG, UNK
  4. LITHIUM [Concomitant]
     Dosage: 1200 MG, UNK

REACTIONS (1)
  - Akathisia [Recovered/Resolved]
